FAERS Safety Report 25299117 (Version 1)
Quarter: 2025Q2

REPORT INFORMATION
  Report Type: Other
  Country: GB (occurrence: GB)
  Receive Date: 20250512
  Receipt Date: 20250512
  Transmission Date: 20250716
  Serious: Yes (Other)
  Sender: GLENMARK
  Company Number: GB-MHRA-TPP27457264C10718429YC1745587462735

PATIENT
  Age: 61 Year
  Sex: Female
  Weight: 70 kg

DRUGS (6)
  1. EZETIMIBE [Suspect]
     Active Substance: EZETIMIBE
     Indication: Blood cholesterol abnormal
     Route: 065
     Dates: start: 20240624, end: 20250404
  2. AMLODIPINE [Concomitant]
     Active Substance: AMLODIPINE BESYLATE
     Indication: Product used for unknown indication
     Route: 065
     Dates: start: 20240606
  3. ASPIRIN [Concomitant]
     Active Substance: ASPIRIN
     Indication: Product used for unknown indication
     Dosage: 1 DOSAGE FORM, OD (ONE TABLET TO BE TAKEN ONCE A DAY TO HELP PREV...)
     Route: 065
     Dates: start: 20240606
  4. ATORVASTATIN [Concomitant]
     Active Substance: ATORVASTATIN
     Indication: Blood cholesterol increased
     Dosage: 1 DOSAGE FORM, QD (ONE TABLET TO BE TAKEN DAILY TO LOWER CHOLESTER...)
     Route: 065
     Dates: start: 20240606
  5. LEVOTHYROXINE [Concomitant]
     Active Substance: LEVOTHYROXINE
     Indication: Product used for unknown indication
     Dosage: 1 DOSAGE FORM, OD (ONE TABLET TO BE TAKEN ONCE A DAY IN THE MORNIN...)
     Route: 065
     Dates: start: 20240606
  6. RAMIPRIL [Concomitant]
     Active Substance: RAMIPRIL
     Indication: Product used for unknown indication
     Dosage: 1 DOSAGE FORM, OD (ONE CAPSULE TO BE TAKEN ONCE A DAY TO REDUCE B...)
     Route: 065
     Dates: start: 20240606

REACTIONS (2)
  - Lethargy [Unknown]
  - Nausea [Recovered/Resolved]
